FAERS Safety Report 17687428 (Version 1)
Quarter: 2020Q2

REPORT INFORMATION
  Report Type: Spontaneous
  Country: FR (occurrence: FR)
  Receive Date: 20200421
  Receipt Date: 20200421
  Transmission Date: 20200714
  Serious: Yes (Hospitalization, Other)
  Sender: FDA-Public Use
  Company Number: FR-GLAXOSMITHKLINE-FR2020067482

PATIENT
  Age: 64 Year
  Sex: Male

DRUGS (1)
  1. DICLOFENAC [Suspect]
     Active Substance: DICLOFENAC
     Indication: PAIN
     Dosage: 2 DF, QD
     Route: 048
     Dates: start: 20170131, end: 20170207

REACTIONS (2)
  - Mastoid abscess [Recovered/Resolved]
  - Bacteroides infection [Recovered/Resolved]

NARRATIVE: CASE EVENT DATE: 20170131
